FAERS Safety Report 8818262 (Version 2)
Quarter: 2012Q4

REPORT INFORMATION
  Report Type: 
  Country: JP (occurrence: JP)
  Receive Date: 20121001
  Receipt Date: 20121003
  Transmission Date: 20130627
  Serious: Yes (Other)
  Sender: FDA-Public Use
  Company Number: JP-GLAXOSMITHKLINE-B0833944A

PATIENT
  Sex: Female

DRUGS (1)
  1. SERETIDE [Suspect]
     Indication: COUGH
     Route: 055

REACTIONS (3)
  - Gastric ulcer [Recovered/Resolved]
  - Gastric cancer [Not Recovered/Not Resolved]
  - Abdominal discomfort [Unknown]
